FAERS Safety Report 12968497 (Version 1)
Quarter: 2016Q4

REPORT INFORMATION
  Report Type: Spontaneous
  Country: JP (occurrence: JP)
  Receive Date: 20161123
  Receipt Date: 20161123
  Transmission Date: 20170207
  Serious: Yes (Hospitalization)
  Sender: FDA-Public Use
  Company Number: JP-BAYER-2016-220876

PATIENT
  Sex: Male
  Weight: 1.76 kg

DRUGS (3)
  1. CLOMIFENE CITRATE [Concomitant]
     Active Substance: CLOMIPHENE
     Dosage: UNK
     Route: 064
  2. CAPROCIN [Concomitant]
     Dosage: UNK
     Route: 064
  3. ACETYLSALICYLIC ACID({=100 MG) [Suspect]
     Active Substance: ASPIRIN
     Dosage: UNK
     Route: 064

REACTIONS (4)
  - Low birth weight baby [None]
  - Premature baby [None]
  - Foetal growth restriction [None]
  - Foetal exposure timing unspecified [Recovered/Resolved]
